FAERS Safety Report 18908954 (Version 1)
Quarter: 2021Q1

REPORT INFORMATION
  Report Type: Spontaneous
  Country: DE (occurrence: DE)
  Receive Date: 20210218
  Receipt Date: 20210218
  Transmission Date: 20210420
  Serious: Yes (Hospitalization)
  Sender: FDA-Public Use
  Company Number: DE-ROCHE-2772037

PATIENT
  Age: 3 Year
  Sex: Female
  Weight: 17 kg

DRUGS (1)
  1. CELLCEPT [Suspect]
     Active Substance: MYCOPHENOLATE MOFETIL\MYCOPHENOLATE MOFETIL HYDROCHLORIDE
     Indication: NEPHROTIC SYNDROME
     Dosage: EVERY DAYS 2 SEPARATED DOSES
     Route: 048
     Dates: start: 20190128

REACTIONS (2)
  - Decreased immune responsiveness [Recovered/Resolved]
  - Staphylococcal impetigo [Recovered/Resolved]

NARRATIVE: CASE EVENT DATE: 20190703
